FAERS Safety Report 15626286 (Version 1)
Quarter: 2018Q4

REPORT INFORMATION
  Report Type: Spontaneous
  Country: US (occurrence: US)
  Receive Date: 20181112
  Receipt Date: 20181112
  Transmission Date: 20190205
  Serious: Yes (Hospitalization)
  Sender: FDA-Public Use
  Company Number: None

PATIENT
  Age: 79 Year
  Sex: Male
  Weight: 107.7 kg

DRUGS (1)
  1. WARFARIN [Suspect]
     Active Substance: WARFARIN
     Indication: ATRIAL FIBRILLATION
     Route: 048
     Dates: start: 20071011, end: 20180801

REACTIONS (6)
  - Melaena [None]
  - Fluid overload [None]
  - Pericardial effusion [None]
  - Asthenia [None]
  - Atrial fibrillation [None]
  - International normalised ratio increased [None]

NARRATIVE: CASE EVENT DATE: 20180716
